FAERS Safety Report 16639063 (Version 1)
Quarter: 2019Q3

REPORT INFORMATION
  Report Type: Spontaneous
  Country: DE (occurrence: DE)
  Receive Date: 20190726
  Receipt Date: 20190726
  Transmission Date: 20191004
  Serious: Yes (Life-Threatening, Hospitalization)
  Sender: FDA-Public Use
  Company Number: DE-MYLANLABS-2019M1070425

PATIENT
  Age: 78 Year
  Sex: Male
  Weight: 90 kg

DRUGS (4)
  1. TORASEMIDE [Suspect]
     Active Substance: TORSEMIDE
     Indication: HYPERTENSION
     Dosage: APPLIKATIONSH?UFIGKEIT UND DOSIS SIND UNBEKANNT
     Route: 048
     Dates: end: 20090415
  2. TAMSULOSIN [Suspect]
     Active Substance: TAMSULOSIN
     Indication: BENIGN PROSTATIC HYPERPLASIA
     Dosage: 0.4 MILLIGRAM
     Route: 048
     Dates: end: 20090415
  3. CO-DIOVAN [Suspect]
     Active Substance: HYDROCHLOROTHIAZIDE\VALSARTAN
     Indication: HYPERTENSION
     Dosage: 1 DF= 40MG VALSARTAN + 6.25MG HCT
     Route: 048
     Dates: end: 20090415
  4. FALITHROM [Suspect]
     Active Substance: PHENPROCOUMON
     Indication: ATRIAL FIBRILLATION
     Dosage: 3 MILLIGRAM
     Route: 048
     Dates: end: 20090415

REACTIONS (14)
  - Nausea [Recovered/Resolved]
  - Oedematous pancreatitis [Recovered/Resolved]
  - Gallbladder hypofunction [Recovering/Resolving]
  - Platelet count increased [Unknown]
  - Hyperhidrosis [Recovering/Resolving]
  - Prothrombin time prolonged [Unknown]
  - White blood cell count increased [Unknown]
  - Blood glucose increased [Unknown]
  - Amylase increased [Unknown]
  - Blood urea increased [Unknown]
  - C-reactive protein increased [Unknown]
  - Pancreatitis acute [Recovered/Resolved]
  - Lipase increased [Recovered/Resolved]
  - Abdominal pain [Recovered/Resolved]

NARRATIVE: CASE EVENT DATE: 20090415
